FAERS Safety Report 18342543 (Version 1)
Quarter: 2020Q4

REPORT INFORMATION
  Report Type: Spontaneous
  Country: US (occurrence: US)
  Receive Date: 20201001
  Receipt Date: 20201001
  Transmission Date: 20210113
  Serious: Yes (Death)
  Sender: FDA-Public Use
  Company Number: None

PATIENT
  Age: 47 Year
  Sex: Male

DRUGS (2)
  1. TEMOZOLOMIDE. [Suspect]
     Active Substance: TEMOZOLOMIDE
     Indication: BRAIN NEOPLASM MALIGNANT
     Dosage: 180 MG DAYS 1-5 Q28 ORAL
     Route: 048
     Dates: start: 20200214
  2. TEMOZOLOMIDE, 250 MG [Suspect]
     Active Substance: TEMOZOLOMIDE
     Indication: BRAIN NEOPLASM MALIGNANT
     Dosage: 250 MG DAYS 1-5 Q28 ORAL
     Route: 048
     Dates: start: 20200214

REACTIONS (1)
  - Death [None]

NARRATIVE: CASE EVENT DATE: 20200918
